FAERS Safety Report 5811036-8 (Version None)
Quarter: 2008Q3

REPORT INFORMATION
  Report Type: 
  Country: None (occurrence: None)
  Receive Date: 20080710
  Receipt Date: 20080625
  Transmission Date: 20090109
  Serious: Yes (Disabling, Other)
  Sender: FDA-Public Use
  Company Number: 19668

PATIENT
  Age: 72 Year
  Sex: Male

DRUGS (11)
  1. ACYCLOVIR [Suspect]
     Dosage: 400 MG TID
     Dates: start: 20080609, end: 20080611
  2. ALFACALCIDOL [Concomitant]
  3. CLOPIDOGREL HYDROGEN SULPHATE [Concomitant]
  4. CREON [Concomitant]
  5. DARBEPOETIN ALFA [Concomitant]
  6. MIXTARD HUMAN 70/30 [Concomitant]
  7. OMEPRAZOLE [Concomitant]
  8. ACETAMINOPHEN [Concomitant]
  9. SIMVASTATIN [Concomitant]
  10. TACROLIMUS [Concomitant]
  11. THIAMINE [Concomitant]

REACTIONS (2)
  - CONFUSIONAL STATE [None]
  - NEUROTOXICITY [None]
